FAERS Safety Report 7918688-7 (Version None)
Quarter: 2011Q4

REPORT INFORMATION
  Report Type: 
  Country: None (occurrence: None)
  Receive Date: 20111116
  Receipt Date: 20111108
  Transmission Date: 20120403
  Serious: Yes (Death)
  Sender: FDA-Public Use
  Company Number: FR-PFIZER INC-2011229443

PATIENT
  Age: 43 Year
  Sex: Male
  Weight: 58 kg

DRUGS (9)
  1. VARENICLINE TARTRATE [Suspect]
     Dosage: 1 MG, 2X/DAY
     Route: 048
     Dates: start: 20110324, end: 20110616
  2. BLINDED NO SUBJECT DRUG [Suspect]
     Indication: SMOKING CESSATION THERAPY
     Dosage: UNK
     Route: 048
     Dates: start: 20100930, end: 20110113
  3. TRIZIVIR [Concomitant]
     Indication: HIV INFECTION
     Dosage: 1 DF, 2X/DAY
     Route: 048
     Dates: start: 20030424
  4. VARENICLINE TARTRATE [Suspect]
     Indication: SMOKING CESSATION THERAPY
     Dosage: 0.5 MG, 1X/DAY
     Route: 048
     Dates: start: 20110317, end: 20110319
  5. VARENICLINE TARTRATE [Suspect]
     Indication: SMOKING CESSATION THERAPY
     Dosage: UNK
     Route: 048
     Dates: start: 20100930, end: 20110113
  6. AOTAL [Concomitant]
     Indication: ABSTAINS FROM ALCOHOL
     Dosage: 2 DF, 3X/DAY
     Route: 048
     Dates: start: 20110113
  7. BLINDED PLACEBO [Suspect]
     Indication: SMOKING CESSATION THERAPY
     Dosage: UNK
     Route: 048
     Dates: start: 20100930, end: 20110113
  8. VARENICLINE TARTRATE [Suspect]
     Dosage: 0.5 MG, 2X/DAY
     Route: 048
     Dates: start: 20110320, end: 20110323
  9. PRAZEPAM [Concomitant]
     Indication: ANXIETY
     Dosage: 1 DF, 3X/DAY
     Route: 048
     Dates: start: 20110113

REACTIONS (1)
  - DEATH [None]
